FAERS Safety Report 7525661-X (Version None)
Quarter: 2011Q2

REPORT INFORMATION
  Report Type: 
  Country: None (occurrence: None)
  Receive Date: 20110606
  Receipt Date: 20110524
  Transmission Date: 20111010
  Serious: Yes (Other)
  Sender: FDA-Public Use
  Company Number: PHHY2011FR45892

PATIENT

DRUGS (1)
  1. RASILEZ [Suspect]
     Dosage: UNK UKN, UNK
     Route: 048

REACTIONS (1)
  - RENAL FAILURE [None]
